FAERS Safety Report 21954979 (Version 13)
Quarter: 2023Q4

REPORT INFORMATION
  Report Type: Spontaneous
  Country: CA (occurrence: CA)
  Receive Date: 20230206
  Receipt Date: 20231106
  Transmission Date: 20240109
  Serious: Yes (Hospitalization, Other)
  Sender: FDA-Public Use
  Company Number: CA-CELLTRION INC.-2023CA001982

PATIENT

DRUGS (13)
  1. INFLECTRA [Suspect]
     Active Substance: INFLIXIMAB-DYYB
     Indication: Colitis ulcerative
     Dosage: 10 MG/KG, INDUCTION WEEK 2, 6 THEN MAINTENANCE VERY 8 WEEKS. HOSPITAL START WEEK 0.
     Route: 042
     Dates: start: 20230113
  2. INFLECTRA [Suspect]
     Active Substance: INFLIXIMAB-DYYB
     Dosage: 10 MG/KG (HOSPITAL START WEEK 0; INDUCTION WEEK 2, 6 THEN MAINTENANCE EVERY 8 WEEKS)
     Route: 042
     Dates: start: 20230126
  3. INFLECTRA [Suspect]
     Active Substance: INFLIXIMAB-DYYB
     Dosage: 10 MG/KG, (1150MG), INDUCTION WEEK 2, 6 THEN MAINTENANCE VERY 8 WEEKS
     Route: 042
     Dates: start: 20230221
  4. INFLECTRA [Suspect]
     Active Substance: INFLIXIMAB-DYYB
     Dosage: 10 MG/KG, (1150MG), INDUCTION WEEK 2, 6 THEN MAINTENANCE VERY 8 WEEKS
     Route: 042
     Dates: start: 20230221
  5. INFLECTRA [Suspect]
     Active Substance: INFLIXIMAB-DYYB
     Dosage: 10MG/KG EVERY 8 WEEKS (INDUCTION WEEK 2, 6 THEN MAINTENANCE VERY 8 WEEKS. HOSPITAL START WEEK 0)
     Route: 042
     Dates: start: 20230418
  6. INFLECTRA [Suspect]
     Active Substance: INFLIXIMAB-DYYB
     Dosage: 10 MG/KG, EVERY 4 WEEK
     Route: 042
     Dates: start: 20230519
  7. INFLECTRA [Suspect]
     Active Substance: INFLIXIMAB-DYYB
     Dosage: 10 MG/KG, EVERY 4 WEEK
     Route: 042
     Dates: start: 20230613
  8. INFLECTRA [Suspect]
     Active Substance: INFLIXIMAB-DYYB
     Dosage: 1150 MG (10MG/KG) EVERY 4 WEEKS
     Route: 042
     Dates: start: 20230711
  9. INFLECTRA [Suspect]
     Active Substance: INFLIXIMAB-DYYB
     Dosage: 1740 MG, AFTER 4 WEEKS (15 MG/KG)
     Route: 042
     Dates: start: 20230808
  10. INFLECTRA [Suspect]
     Active Substance: INFLIXIMAB-DYYB
     Dosage: 15 MG/KG,  EVERY 4 WEEKS
     Route: 042
     Dates: start: 20230908
  11. INFLECTRA [Suspect]
     Active Substance: INFLIXIMAB-DYYB
     Dosage: 15 MG/KG (1725MG) EVERY 4 WEEKS
     Route: 042
     Dates: start: 20231005
  12. CORTISONE [Concomitant]
     Active Substance: CORTISONE
     Dosage: UNK
  13. INSULIN NOS [Concomitant]
     Active Substance: INSULIN NOS
     Dosage: 1 DF

REACTIONS (38)
  - Paralysis [Recovered/Resolved]
  - Coronary artery thrombosis [Recovering/Resolving]
  - Pneumonia [Not Recovered/Not Resolved]
  - Cytomegalovirus infection [Not Recovered/Not Resolved]
  - Condition aggravated [Recovered/Resolved]
  - Erythema [Recovered/Resolved]
  - Head discomfort [Recovered/Resolved]
  - Musculoskeletal discomfort [Recovered/Resolved]
  - Dyspnoea [Recovered/Resolved]
  - Hot flush [Recovered/Resolved]
  - Tremor [Recovered/Resolved]
  - Headache [Recovered/Resolved]
  - Anxiety [Recovered/Resolved]
  - Therapeutic product effect incomplete [Unknown]
  - Drug specific antibody present [Unknown]
  - Weight increased [Unknown]
  - Vaginal infection [Recovering/Resolving]
  - Hunger [Not Recovered/Not Resolved]
  - Abdominal distension [Not Recovered/Not Resolved]
  - Pain in extremity [Not Recovered/Not Resolved]
  - Muscle spasms [Not Recovered/Not Resolved]
  - Arthralgia [Not Recovered/Not Resolved]
  - Musculoskeletal stiffness [Not Recovered/Not Resolved]
  - Hyperphagia [Not Recovered/Not Resolved]
  - Dry mouth [Recovering/Resolving]
  - Dehydration [Recovering/Resolving]
  - Abdominal pain lower [Not Recovered/Not Resolved]
  - Pulmonary mass [Unknown]
  - Oedema peripheral [Not Recovered/Not Resolved]
  - Tremor [Not Recovered/Not Resolved]
  - Balance disorder [Not Recovered/Not Resolved]
  - Hypoaesthesia [Not Recovered/Not Resolved]
  - Dysphonia [Not Recovered/Not Resolved]
  - Arthritis [Not Recovered/Not Resolved]
  - Off label use [Unknown]
  - Off label use [Unknown]
  - Off label use [Unknown]
  - Intentional product use issue [Unknown]

NARRATIVE: CASE EVENT DATE: 20230101
